FAERS Safety Report 16363593 (Version 3)
Quarter: 2019Q4

REPORT INFORMATION
  Report Type: Spontaneous
  Country: CA (occurrence: CA)
  Receive Date: 20190528
  Receipt Date: 20191113
  Transmission Date: 20200122
  Serious: Yes (Life-Threatening, Other)
  Sender: FDA-Public Use
  Company Number: CA-ASTRAZENECA-2019SE78949

PATIENT
  Age: 59 Year
  Sex: Male

DRUGS (2)
  1. SYMBICORT [Suspect]
     Active Substance: BUDESONIDE\FORMOTEROL FUMARATE DIHYDRATE
     Indication: ASTHMA
     Dosage: 200 MG 2 PUFFS TWO TIMES A DAY
     Route: 055
     Dates: start: 20190410, end: 20190504
  2. ALVESCO [Concomitant]
     Active Substance: CICLESONIDE

REACTIONS (6)
  - Insomnia [Recovered/Resolved]
  - Depression [Recovered/Resolved]
  - Mood swings [Recovered/Resolved]
  - Suicidal ideation [Recovered/Resolved]
  - Migraine [Recovered/Resolved]
  - Intraocular pressure test abnormal [Recovered/Resolved]
